FAERS Safety Report 9045233 (Version 1)
Quarter: 2013Q1

REPORT INFORMATION
  Report Type: Spontaneous
  Country: IT (occurrence: IT)
  Receive Date: 20130131
  Receipt Date: 20130131
  Transmission Date: 20140127
  Serious: Yes (Hospitalization)
  Sender: FDA-Public Use
  Company Number: IT-MYLANLABS-2013S1001484

PATIENT
  Age: 82 Year
  Sex: Female

DRUGS (8)
  1. FUROSEMIDE [Suspect]
     Indication: CARDIAC FAILURE
     Route: 048
     Dates: start: 20090101, end: 20121018
  2. COUMADIN [Concomitant]
     Indication: PRODUCT USED FOR UNKNOWN INDICATION
  3. ATORVASTATIN CALCIUM TRIHYDRATE [Concomitant]
     Indication: PRODUCT USED FOR UNKNOWN INDICATION
  4. BISOPROLOL HEMIFUMARATE [Concomitant]
     Indication: CARDIAC FAILURE
  5. OMEPRAZOLE [Concomitant]
     Indication: PRODUCT USED FOR UNKNOWN INDICATION
  6. ENALAPRIL MALEATE [Concomitant]
     Indication: PRODUCT USED FOR UNKNOWN INDICATION
  7. AMIODARONE HYDROCHLORIDE [Concomitant]
     Indication: PRODUCT USED FOR UNKNOWN INDICATION
  8. NITROGLYCERIN [Concomitant]
     Indication: PRODUCT USED FOR UNKNOWN INDICATION

REACTIONS (2)
  - Presyncope [Recovered/Resolved]
  - Hypotension [Recovered/Resolved]
